FAERS Safety Report 4707702-8 (Version None)
Quarter: 2005Q2

REPORT INFORMATION
  Report Type: 
  Country: None (occurrence: None)
  Receive Date: 20050629
  Receipt Date: 20050303
  Transmission Date: 20051028
  Serious: No
  Sender: FDA-Public Use
  Company Number: 05P-163-0292809-00

PATIENT
  Age: 69 Year
  Sex: Female
  Weight: 71.6683 kg

DRUGS (6)
  1. HUMIRA [Suspect]
     Indication: RHEUMATOID ARTHRITIS
     Dosage: 40 MG, 1 IN 2 WK, SUBCUTANEOUS
     Route: 058
     Dates: start: 20050101
  2. PYRIDOXINE HYDROCHLORIDE [Concomitant]
  3. NAPROXEN SODIUM [Concomitant]
  4. CERTO [Concomitant]
  5. VENLAFAXINE HCL [Concomitant]
  6. QUETIAPINE FUMARATE [Concomitant]

REACTIONS (3)
  - ARTHROPATHY [None]
  - FLUID RETENTION [None]
  - OEDEMA PERIPHERAL [None]
